FAERS Safety Report 18864714 (Version 1)
Quarter: 2021Q1

REPORT INFORMATION
  Report Type: Spontaneous
  Country: US (occurrence: US)
  Receive Date: 20210208
  Receipt Date: 20210208
  Transmission Date: 20210420
  Serious: No
  Sender: FDA-Public Use
  Company Number: None

PATIENT
  Age: 67 Year
  Sex: Female
  Weight: 70.2 kg

DRUGS (1)
  1. DARZALEX [Suspect]
     Active Substance: DARATUMUMAB
     Indication: PLASMA CELL MYELOMA
     Dosage: ?          OTHER FREQUENCY:WEEKLY;?
     Route: 046
     Dates: start: 20201209

REACTIONS (5)
  - Paraesthesia oral [None]
  - Throat irritation [None]
  - Cough [None]
  - Chest pain [None]
  - Pruritus [None]

NARRATIVE: CASE EVENT DATE: 20201209
